FAERS Safety Report 4627638-0 (Version None)
Quarter: 2005Q2

REPORT INFORMATION
  Report Type: 
  Country: None (occurrence: None)
  Receive Date: 20050401
  Receipt Date: 20050401
  Transmission Date: 20051028
  Serious: Yes (Life-Threatening, Hospitalization)
  Sender: FDA-Public Use
  Company Number: None

PATIENT
  Age: 46 Year
  Sex: Male
  Weight: 95.2554 kg

DRUGS (6)
  1. MOBIC [Suspect]
     Indication: ARTHRALGIA
     Dosage: 1  A DAY ORAL
     Route: 048
     Dates: start: 20050207, end: 20050303
  2. MOBIC [Suspect]
     Indication: BACK PAIN
     Dosage: 1  A DAY ORAL
     Route: 048
     Dates: start: 20050207, end: 20050303
  3. MOBIC [Suspect]
     Indication: INTERVERTEBRAL DISC PROTRUSION
     Dosage: 1  A DAY ORAL
     Route: 048
     Dates: start: 20050207, end: 20050303
  4. CELEBREX [Suspect]
     Indication: ARTHRALGIA
     Dosage: 1 A DAY ORAL
     Route: 048
     Dates: start: 20040601, end: 20050131
  5. CELEBREX [Suspect]
     Indication: BACK PAIN
     Dosage: 1 A DAY ORAL
     Route: 048
     Dates: start: 20040601, end: 20050131
  6. CELEBREX [Suspect]
     Indication: INTERVERTEBRAL DISC PROTRUSION
     Dosage: 1 A DAY ORAL
     Route: 048
     Dates: start: 20040601, end: 20050131

REACTIONS (1)
  - MYOCARDIAL INFARCTION [None]
